FAERS Safety Report 5662330-5 (Version None)
Quarter: 2008Q1

REPORT INFORMATION
  Report Type: 
  Country: None (occurrence: None)
  Receive Date: 20080312
  Receipt Date: 20080229
  Transmission Date: 20080703
  Serious: Yes (Hospitalization)
  Sender: FDA-Public Use
  Company Number: GB-PFIZER INC-2008019775

PATIENT
  Age: 68 Year
  Sex: Female
  Weight: 72 kg

DRUGS (2)
  1. CHANTIX [Suspect]
     Indication: SMOKING CESSATION THERAPY
     Route: 048
     Dates: start: 20070801, end: 20071001
  2. IBUPROFEN [Concomitant]
     Route: 048

REACTIONS (4)
  - BALANCE DISORDER [None]
  - FALL [None]
  - PUBIC RAMI FRACTURE [None]
  - VIOLENCE-RELATED SYMPTOM [None]
